FAERS Safety Report 9444810 (Version 5)
Quarter: 2013Q4

REPORT INFORMATION
  Report Type: Spontaneous
  Country: US (occurrence: US)
  Receive Date: 20130807
  Receipt Date: 20131105
  Transmission Date: 20140711
  Serious: Yes (Life-Threatening, Hospitalization, Other)
  Sender: FDA-Public Use
  Company Number: PHEH2013US016437

PATIENT
  Age: 44 Year
  Sex: Female
  Weight: 58.5 kg

DRUGS (30)
  1. GILENYA [Suspect]
     Indication: RELAPSING-REMITTING MULTIPLE SCLEROSIS
     Dosage: 0.5 MG, QD
     Route: 048
     Dates: start: 201302, end: 20130522
  2. AMBIEN [Concomitant]
     Dosage: 10 MG, AT NIGHT TIME
  3. SENOKOT [Concomitant]
     Dosage: 2 DF, TID
  4. SEROQUEL [Concomitant]
     Dosage: 4 DF, AT NIGHT
  5. NEXUM [Concomitant]
     Dosage: 40 MG, QD EACH MORNING
  6. LOPERAMIDE [Concomitant]
     Dosage: 2 MG, BID
  7. LISINOPRIL [Concomitant]
     Indication: STRESS CARDIOMYOPATHY
     Dosage: 20 MG, DAILY
     Dates: start: 201307
  8. BENADRYL [Concomitant]
     Dosage: 50 MG, DAILY
  9. BIOTIN [Concomitant]
     Dosage: 1000 UG, 2 CAP AT  NIGHT
  10. ZOLOFT [Concomitant]
     Dosage: 200 MG, QD
  11. FLORICAL [Concomitant]
     Indication: MIGRAINE
     Dosage: 1TO 2 TABLETS, PRN
  12. CYCLOBENZAPRINE [Concomitant]
     Indication: MUSCLE SPASMS
     Dosage: 10 MG, EVERY 6-8 HOURS AS NEEDED
  13. ALDACTONE [Concomitant]
     Dosage: 25 MG, Q2M
  14. COREG [Concomitant]
     Dosage: 12.5 MG, BID
  15. ZANIFLEX [Concomitant]
     Dosage: 4 MG, QID
  16. CALCIUM CARBONATE W/MAGNESIUM [Concomitant]
     Dosage: BID
  17. SUMATRIPTAN [Concomitant]
     Dosage: 100 MG, PRN
  18. CLONAZEPAM [Concomitant]
     Dosage: 2 DF, AT NIGHT
  19. PRAMIPEXOL [Concomitant]
     Dosage: 0.5 MG, NIGHTLY
  20. PRAMIPEXOL [Concomitant]
     Dosage: 0.5 MG, NIGHTLY
  21. COLACE [Concomitant]
     Dosage: 100 MG, TID
  22. MECLIZINE [Concomitant]
     Dosage: 12.5 MG, PRN
  23. LORATADIN [Concomitant]
     Dosage: 10 MG, QD
  24. METHOCARBAMOL [Concomitant]
     Dosage: 750 MG, Q6H
  25. FLONASE [Concomitant]
     Dosage: 2 NASAL SPRAY EACH NOSTRILS
  26. FARGAN//PROMETHAZINE HYDROCHLORIDE [Concomitant]
     Dosage: 50 MG, PRN
  27. IMITREX//SUMATRIPTAN [Concomitant]
     Dosage: 100 MG, PRN
     Route: 048
  28. TIZANIDINE HYDROCHLORIDE [Concomitant]
     Dosage: 16 MG, DAILY
  29. ASPIRIN [Concomitant]
     Dosage: 1 DF, BID
     Route: 048
  30. CLONIDINE HCL [Concomitant]
     Dosage: 0.1 MG, DAILY

REACTIONS (54)
  - Cardiac arrest [Recovering/Resolving]
  - Supraventricular extrasystoles [Unknown]
  - Ventricular extrasystoles [Unknown]
  - Cardiac failure congestive [Recovering/Resolving]
  - Electrocardiogram ST segment depression [Unknown]
  - Electrocardiogram QRS complex prolonged [Unknown]
  - Sinus tachycardia [Unknown]
  - Chest pain [Recovering/Resolving]
  - Stress cardiomyopathy [Unknown]
  - Hyperhidrosis [Unknown]
  - Speech disorder [Unknown]
  - Blood creatine phosphokinase decreased [Unknown]
  - Blood pH increased [Unknown]
  - PO2 increased [Unknown]
  - Blood chloride increased [Unknown]
  - Anion gap increased [Unknown]
  - PCO2 decreased [Unknown]
  - Blood sodium increased [Unknown]
  - Blood bicarbonate decreased [Unknown]
  - Fibrin D dimer increased [Unknown]
  - Respiratory rate increased [Unknown]
  - Lung hyperinflation [Unknown]
  - Nervous system disorder [Unknown]
  - Respiratory distress [Unknown]
  - Anxiety [Unknown]
  - Acute myocardial infarction [Unknown]
  - Pulmonary oedema [Unknown]
  - Abdominal pain [Unknown]
  - Hypokalaemia [Unknown]
  - Blood glucose increased [Unknown]
  - Blood pressure decreased [Unknown]
  - Depression [Unknown]
  - Multiple sclerosis relapse [Recovering/Resolving]
  - Pain [Unknown]
  - Central nervous system lesion [Recovering/Resolving]
  - Restless legs syndrome [Unknown]
  - Pain in extremity [Unknown]
  - Blood pressure increased [Unknown]
  - Sepsis [Unknown]
  - Headache [Unknown]
  - Back pain [Unknown]
  - Hypotension [Unknown]
  - Heart rate increased [Unknown]
  - Hypertension [Unknown]
  - Hypoxia [Recovered/Resolved]
  - Polyuria [Unknown]
  - Hypomagnesaemia [Recovered/Resolved]
  - Fluid overload [Unknown]
  - Oedema [Recovered/Resolved]
  - Nausea [Recovering/Resolving]
  - Hyponatraemia [Recovered/Resolved]
  - Vomiting [Recovering/Resolving]
  - Migraine [Unknown]
  - Dyspnoea [Recovering/Resolving]
